FAERS Safety Report 19913392 (Version 1)
Quarter: 2021Q4

REPORT INFORMATION
  Report Type: Spontaneous
  Country: US (occurrence: US)
  Receive Date: 20211004
  Receipt Date: 20211004
  Transmission Date: 20220303
  Serious: No
  Sender: FDA-Public Use
  Company Number: US-009507513-2109USA002842

PATIENT
  Age: 47 Year
  Sex: Male

DRUGS (3)
  1. NOXAFIL [Suspect]
     Active Substance: POSACONAZOLE
     Indication: Fusarium infection
     Dosage: 300 MG DAILY
     Route: 048
  2. NOXAFIL [Suspect]
     Active Substance: POSACONAZOLE
     Indication: Keratitis fungal
     Dosage: 400 MG DAILY
     Route: 048
  3. NOXAFIL [Suspect]
     Active Substance: POSACONAZOLE
     Dosage: 500 MG DAILY
     Route: 048

REACTIONS (2)
  - Product use in unapproved indication [Unknown]
  - Incorrect dose administered [Unknown]
